FAERS Safety Report 15689019 (Version 1)
Quarter: 2018Q4

REPORT INFORMATION
  Report Type: Spontaneous
  Country: US (occurrence: US)
  Receive Date: 20181205
  Receipt Date: 20181205
  Transmission Date: 20190205
  Serious: No
  Sender: FDA-Public Use
  Company Number: US-TEVA-2018-US-982321

PATIENT
  Sex: Male

DRUGS (1)
  1. CARVEDILOL. [Suspect]
     Active Substance: CARVEDILOL
     Route: 065
     Dates: start: 20181126

REACTIONS (4)
  - Drug hypersensitivity [Unknown]
  - Blood pressure increased [Unknown]
  - Feeling abnormal [Unknown]
  - Headache [Unknown]
